FAERS Safety Report 13153898 (Version 1)
Quarter: 2017Q1

REPORT INFORMATION
  Report Type: Spontaneous
  Country: ES (occurrence: ES)
  Receive Date: 20170126
  Receipt Date: 20170126
  Transmission Date: 20170428
  Serious: Yes (Death, Other)
  Sender: FDA-Public Use
  Company Number: ES-CELGENEUS-144-50794-11061172

PATIENT

DRUGS (2)
  1. VIDAZA [Suspect]
     Active Substance: AZACITIDINE
     Indication: MYELODYSPLASTIC SYNDROME
     Dosage: 75 MILLIGRAM/SQ. METER
     Route: 058
  2. VIDAZA [Suspect]
     Active Substance: AZACITIDINE
     Indication: ACUTE MYELOID LEUKAEMIA

REACTIONS (15)
  - Anaemia [Unknown]
  - Nausea [Unknown]
  - Escherichia bacteraemia [Fatal]
  - Febrile neutropenia [Unknown]
  - Thrombocytopenia [Unknown]
  - Constipation [Unknown]
  - Diarrhoea [Unknown]
  - Acute myeloid leukaemia [Unknown]
  - Myelodysplastic syndrome [Fatal]
  - Fungal infection [Fatal]
  - Death [Fatal]
  - Staphylococcal bacteraemia [Fatal]
  - Neutropenia [Unknown]
  - Injection site reaction [Unknown]
  - Pyrexia [Unknown]
